FAERS Safety Report 6815094-3 (Version None)
Quarter: 2010Q3

REPORT INFORMATION
  Report Type: 
  Country: None (occurrence: None)
  Receive Date: 20100702
  Receipt Date: 20100624
  Transmission Date: 20110219
  Serious: Yes (Hospitalization)
  Sender: FDA-Public Use
  Company Number: ES-WATSON-2010-07586

PATIENT
  Age: 72 Year
  Sex: Male

DRUGS (3)
  1. LIDOCAINE HCL [Suspect]
     Indication: LOCAL ANAESTHESIA
     Dosage: 1%
     Route: 056
  2. BUPIVACAINE HCL [Suspect]
     Indication: LOCAL ANAESTHESIA
     Dosage: 0.375%
  3. HYALURONIDASE [Suspect]
     Indication: LOCAL ANAESTHESIA
     Dosage: 15 U/ML

REACTIONS (2)
  - LOSS OF CONSCIOUSNESS [None]
  - RESPIRATORY DEPRESSION [None]
